FAERS Safety Report 5183841-5 (Version None)
Quarter: 2006Q4

REPORT INFORMATION
  Report Type: 
  Country: None (occurrence: None)
  Receive Date: 20061220
  Receipt Date: 20061205
  Transmission Date: 20070319
  Serious: Yes (Other)
  Sender: FDA-Public Use
  Company Number: FR-GLAXOSMITHKLINE-B0450350A

PATIENT
  Age: 70 Year
  Sex: Female

DRUGS (2)
  1. ARIXTRA [Suspect]
     Indication: PHLEBITIS
     Dosage: 7.5MG PER DAY
     Route: 058
     Dates: start: 20060101
  2. LOW MOLECULAR WEIGHT HEPARIN [Suspect]
     Dates: start: 20060101

REACTIONS (2)
  - HAEMATOCHEZIA [None]
  - INCISION SITE HAEMORRHAGE [None]
